FAERS Safety Report 24230731 (Version 1)
Quarter: 2024Q3

REPORT INFORMATION
  Report Type: Spontaneous
  Country: US (occurrence: US)
  Receive Date: 20240821
  Receipt Date: 20240821
  Transmission Date: 20241017
  Serious: No
  Sender: BIOGEN
  Company Number: US-BIOGEN-2020BI00838917

PATIENT
  Sex: Female

DRUGS (1)
  1. TYSABRI [Suspect]
     Active Substance: NATALIZUMAB
     Indication: Multiple sclerosis
     Dosage: INFUSED OVER 1 HOUR
     Route: 050
     Dates: start: 20200210, end: 202402

REACTIONS (6)
  - Magnetic resonance imaging abnormal [Not Recovered/Not Resolved]
  - Musculoskeletal disorder [Unknown]
  - Venous haemorrhage [Unknown]
  - Anxiety [Recovered/Resolved]
  - Seasonal allergy [Not Recovered/Not Resolved]
  - Headache [Recovered/Resolved]
